FAERS Safety Report 6370281-6 (Version None)
Quarter: 2009Q3

REPORT INFORMATION
  Report Type: 
  Country: None (occurrence: None)
  Receive Date: 20090921
  Receipt Date: 20090921
  Transmission Date: 20100115
  Serious: Yes (Life-Threatening, Hospitalization)
  Sender: FDA-Public Use
  Company Number: None

PATIENT
  Age: 75 Year
  Sex: Male
  Weight: 77.1115 kg

DRUGS (1)
  1. FLUOROURACIL [Suspect]
     Dosage: APPLY TO FACE 2 TIMES DAILY
     Dates: start: 20090707, end: 20090714

REACTIONS (1)
  - DIARRHOEA HAEMORRHAGIC [None]
